FAERS Safety Report 6417299-2 (Version None)
Quarter: 2009Q4

REPORT INFORMATION
  Report Type: 
  Country: None (occurrence: None)
  Receive Date: 20091028
  Receipt Date: 20091019
  Transmission Date: 20100525
  Serious: Yes (Other)
  Sender: FDA-Public Use
  Company Number: PHHY2009AU45686

PATIENT
  Sex: Male

DRUGS (1)
  1. TRILEPTAL [Suspect]
     Dosage: UNK

REACTIONS (3)
  - ARRHYTHMIA [None]
  - BRADYCARDIA [None]
  - SICK SINUS SYNDROME [None]
